FAERS Safety Report 14940909 (Version 2)
Quarter: 2018Q3

REPORT INFORMATION
  Report Type: Report from Study
  Country: IE (occurrence: IE)
  Receive Date: 20180525
  Receipt Date: 20180725
  Transmission Date: 20181010
  Serious: Yes (Death, Hospitalization, Other)
  Sender: FDA-Public Use
  Company Number: IE-BIOGEN-2018BI00584253

PATIENT
  Age: 9 Month
  Sex: Male

DRUGS (1)
  1. NUSINERSEN [Suspect]
     Active Substance: NUSINERSEN
     Indication: PRODUCT USED FOR UNKNOWN INDICATION
     Route: 065

REACTIONS (6)
  - Nystagmus [Unknown]
  - Optic atrophy [Unknown]
  - Asthenia [Unknown]
  - Death [Fatal]
  - Human bocavirus infection [Recovered/Resolved]
  - Inborn error of metabolism [Unknown]

NARRATIVE: CASE EVENT DATE: 201801
